FAERS Safety Report 7489920-1 (Version None)
Quarter: 2011Q2

REPORT INFORMATION
  Report Type: 
  Country: None (occurrence: None)
  Receive Date: 20110517
  Receipt Date: 20110517
  Transmission Date: 20111010
  Serious: No
  Sender: FDA-Public Use
  Company Number: None

PATIENT
  Sex: Female
  Weight: 81.6475 kg

DRUGS (3)
  1. NULYTELY [Suspect]
  2. GOLYTELY [Suspect]
  3. MIRALAX [Suspect]

REACTIONS (1)
  - PRODUCT QUALITY ISSUE [None]
